FAERS Safety Report 8630576 (Version 3)
Quarter: 2012Q4

REPORT INFORMATION
  Report Type: 
  Country: FR (occurrence: FR)
  Receive Date: 20120622
  Receipt Date: 20120829
  Transmission Date: 20130627
  Serious: Yes (Death, Other)
  Sender: FDA-Public Use
  Company Number: FR-GENZYME-CERZ-1002539

PATIENT
  Age: 19 None
  Sex: Male
  Weight: 68 kg

DRUGS (4)
  1. CEREZYME [Suspect]
     Indication: GAUCHER^S DISEASE
     Dosage: 9 vials q2w
     Route: 042
     Dates: start: 19970115
  2. CEREDASE [Concomitant]
     Indication: GAUCHER^S DISEASE
     Dosage: UNK
     Route: 065
     Dates: start: 19950801
  3. LAROXYL [Concomitant]
     Indication: MIGRAINE
     Dosage: 1 tablet qd
     Route: 065
  4. BI-PROFENID [Concomitant]
     Indication: MIGRAINE
     Route: 065

REACTIONS (11)
  - Lung infiltration [Fatal]
  - Disease progression [Fatal]
  - Pulmonary oedema [Fatal]
  - Dyskinesia [Unknown]
  - Headache [Unknown]
  - Cough [Unknown]
  - Dyskinesia [None]
  - Sudden death [None]
  - Petit mal epilepsy [None]
  - Gaucher^s disease [None]
  - Cardiac arrest [None]
